FAERS Safety Report 14294769 (Version 1)
Quarter: 2017Q4

REPORT INFORMATION
  Report Type: Other
  Country: DE (occurrence: DE)
  Receive Date: 20171218
  Receipt Date: 20171218
  Transmission Date: 20180321
  Serious: Yes (Hospitalization, Other)
  Sender: FDA-Public Use
  Company Number: DE-ORCHID HEALTHCARE-2037265

PATIENT
  Age: 38 Year
  Sex: Female

DRUGS (1)
  1. DIVALPROEX SODIUM. [Suspect]
     Active Substance: DIVALPROEX SODIUM
     Indication: BIPOLAR DISORDER
     Route: 065

REACTIONS (10)
  - Withdrawal syndrome [Recovered/Resolved]
  - Suicidal ideation [Recovered/Resolved]
  - Dizziness [Unknown]
  - Overdose [Recovered/Resolved]
  - Weight increased [Unknown]
  - Headache [Unknown]
  - Visual impairment [Unknown]
  - Sleep disorder [Unknown]
  - Drug level above therapeutic [Recovered/Resolved]
  - Impulsive behaviour [Recovered/Resolved]
